FAERS Safety Report 9240075 (Version 1)
Quarter: 2013Q2

REPORT INFORMATION
  Report Type: Spontaneous
  Country: FR (occurrence: None)
  Receive Date: 20130417
  Receipt Date: 20130417
  Transmission Date: 20140414
  Serious: Yes (Other)
  Sender: FDA-Public Use
  Company Number: SYM-2013-02606

PATIENT
  Age: 14 Year
  Sex: Male

DRUGS (3)
  1. FLAGYL (METRONIDAZOLE BENZOATE) [Suspect]
     Indication: APPENDICEAL ABSCESS
     Route: 042
     Dates: start: 20130129, end: 20130201
  2. CEFOTAXIME (CEFOTAXIME)(CEFOTAXIME) [Concomitant]
  3. GENTAMICIN (GENTAMICIN)(GENTAMICIN) [Concomitant]

REACTIONS (2)
  - Vomiting [None]
  - Dysgeusia [None]
